FAERS Safety Report 10342958 (Version 1)
Quarter: 2014Q3

REPORT INFORMATION
  Report Type: Spontaneous
  Country: CH (occurrence: None)
  Receive Date: 20140723
  Receipt Date: 20140723
  Transmission Date: 20150326
  Serious: Yes (Hospitalization)
  Sender: FDA-Public Use
  Company Number: 20140413

PATIENT
  Age: 74 Year
  Sex: Male

DRUGS (1)
  1. FERINJECT [Suspect]
     Active Substance: FERRIC CARBOXYMALTOSE
     Indication: IRON DEFICIENCY ANAEMIA
     Dates: start: 20140320, end: 20140328

REACTIONS (5)
  - Headache [None]
  - Pyrexia [None]
  - Nausea [None]
  - General physical health deterioration [None]
  - Oedema peripheral [None]

NARRATIVE: CASE EVENT DATE: 20140320
